FAERS Safety Report 23014629 (Version 2)
Quarter: 2023Q4

REPORT INFORMATION
  Report Type: Spontaneous
  Country: LU (occurrence: LU)
  Receive Date: 20231002
  Receipt Date: 20231120
  Transmission Date: 20240110
  Serious: Yes (Other)
  Sender: FDA-Public Use
  Company Number: None

PATIENT
  Sex: Female

DRUGS (1)
  1. KEPPRA [Suspect]
     Active Substance: LEVETIRACETAM
     Indication: Epilepsy
     Dosage: UNK
     Route: 065

REACTIONS (2)
  - Premature delivery [Unknown]
  - Paternal exposure during pregnancy [Unknown]

NARRATIVE: CASE EVENT DATE: 20230904
